FAERS Safety Report 7237232-3 (Version None)
Quarter: 2011Q1

REPORT INFORMATION
  Report Type: 
  Country: None (occurrence: None)
  Receive Date: 20110121
  Receipt Date: 20101101
  Transmission Date: 20110831
  Serious: Yes (Hospitalization)
  Sender: FDA-Public Use
  Company Number: US-BAYER-201028841NA

PATIENT
  Sex: Female
  Weight: 99.773 kg

DRUGS (4)
  1. UNCODEABLE ^UNCLASSIFIABLE^ [Concomitant]
     Dosage: 800 MG, UNK
     Dates: start: 20040401
  2. SPIRONOLACTONE [Concomitant]
     Dosage: 100 MG, UNK
     Dates: start: 20040415
  3. YASMIN [Suspect]
     Indication: ORAL CONTRACEPTION
     Dosage: UNK UNK, QD
     Dates: start: 20031101, end: 20080101
  4. SPIRONOLACTONE [Concomitant]
     Dosage: 200 MG, BID
     Dates: start: 20041019, end: 20050307

REACTIONS (6)
  - ABDOMINAL PAIN [None]
  - NAUSEA [None]
  - CHROMATURIA [None]
  - CHOLECYSTITIS ACUTE [None]
  - CHOLELITHIASIS [None]
  - INJURY [None]
